FAERS Safety Report 10093998 (Version 2)
Quarter: 2014Q2

REPORT INFORMATION
  Report Type: Report from Study
  Country: CL (occurrence: CL)
  Receive Date: 20140422
  Receipt Date: 20140501
  Transmission Date: 20141212
  Serious: Yes (Other)
  Sender: FDA-Public Use
  Company Number: CL-ROCHE-1383848

PATIENT
  Age: 77 Year
  Sex: Female
  Weight: 63 kg

DRUGS (10)
  1. ACTEMRA [Suspect]
     Indication: RHEUMATOID ARTHRITIS
     Route: 042
     Dates: start: 20131218
  2. SULFASALAZINE [Suspect]
     Indication: RHEUMATOID ARTHRITIS
     Route: 048
  3. PARACETAMOL [Suspect]
     Indication: RHEUMATOID ARTHRITIS
     Route: 048
  4. LEFLUNOMIDE [Suspect]
     Indication: RHEUMATOID ARTHRITIS
     Route: 048
  5. TRAMADOL [Suspect]
     Indication: RHEUMATOID ARTHRITIS
     Route: 048
  6. PREDNISONE [Suspect]
     Indication: RHEUMATOID ARTHRITIS
     Route: 048
  7. ACETYLSALICYLIC ACID [Concomitant]
     Route: 048
  8. SERTRALINE [Concomitant]
     Indication: DEPRESSION
     Route: 048
  9. AMLODIPINE [Concomitant]
     Indication: HYPERTENSION
     Route: 048
  10. LEVOTHYROXINE [Concomitant]
     Indication: HYPOTHYROIDISM
     Route: 065

REACTIONS (3)
  - Gastroenteritis [Recovered/Resolved]
  - Diverticulum intestinal haemorrhagic [Not Recovered/Not Resolved]
  - White blood cell count decreased [Recovered/Resolved]
